FAERS Safety Report 18460964 (Version 1)
Quarter: 2020Q4

REPORT INFORMATION
  Report Type: Report from Study
  Country: ES (occurrence: ES)
  Receive Date: 20201104
  Receipt Date: 20201104
  Transmission Date: 20210114
  Serious: Yes (Life-Threatening, Hospitalization)
  Sender: FDA-Public Use
  Company Number: ES-TEVA-2020-ES-1844274

PATIENT
  Age: 76 Year
  Sex: Female

DRUGS (8)
  1. OMEPRAZOL (2141A) [Concomitant]
     Active Substance: OMEPRAZOLE
  2. PAROXETINA (2586A) [Concomitant]
     Active Substance: PAROXETINE
  3. ONDANSETRON (2575A) [Suspect]
     Active Substance: ONDANSETRON
     Indication: ABDOMINAL PAIN
     Dosage: 8 MG
     Dates: start: 20200130, end: 20200130
  4. RAMIPRIL (2497A) [Concomitant]
     Active Substance: RAMIPRIL
  5. NIFEDIPINO (3253A) [Concomitant]
     Active Substance: NIFEDIPINE
  6. FUROSEMIDA (1615A) [Concomitant]
     Active Substance: FUROSEMIDE
  7. ACETILCISTEINA (233A) [Concomitant]
  8. CARVEDILOL (2431A) [Concomitant]
     Active Substance: CARVEDILOL

REACTIONS (4)
  - Skin reaction [Recovered/Resolved]
  - Pruritus [Recovered/Resolved]
  - Dyspnoea [Recovered/Resolved]
  - Bronchospasm [Recovered/Resolved]

NARRATIVE: CASE EVENT DATE: 20200130
